FAERS Safety Report 7063100-6 (Version None)
Quarter: 2010Q4

REPORT INFORMATION
  Report Type: 
  Country: None (occurrence: None)
  Receive Date: 20101026
  Receipt Date: 20100414
  Transmission Date: 20110411
  Serious: No
  Sender: FDA-Public Use
  Company Number: US-PFIZER INC-2010047778

PATIENT
  Sex: Female

DRUGS (3)
  1. LIPITOR [Suspect]
  2. ZOLOFT [Suspect]
  3. NIACIN [Suspect]

REACTIONS (2)
  - FATIGUE [None]
  - HYPERSOMNIA [None]
